FAERS Safety Report 4570200-9 (Version None)
Quarter: 2005Q1

REPORT INFORMATION
  Report Type: 
  Country: None (occurrence: None)
  Receive Date: 20050202
  Receipt Date: 20050128
  Transmission Date: 20050727
  Serious: Yes (Death)
  Sender: FDA-Public Use
  Company Number: J081-002-001861

PATIENT
  Age: 71 Year
  Sex: Male

DRUGS (10)
  1. ARICEPT [Suspect]
     Indication: DEMENTIA ALZHEIMER'S TYPE
     Dosage: 5 MG, 1 IN 1 D, ORAL
     Route: 048
  2. DOGMATYL (SULPIRIDE) [Concomitant]
  3. LEXOTAN (BROMAZEPAM) [Concomitant]
  4. RITALIN [Concomitant]
  5. NITRAZEPAM [Concomitant]
  6. BROVARIN (BROMISOVAL) [Concomitant]
  7. ISOMYTAL (AMOBARBITAL) [Concomitant]
  8. TRAZODONE HCL [Concomitant]
  9. AMOBAN (ZOPICLONE) [Concomitant]
  10. TETRAMIDE (MIANSERIN HYDROCHLORIDE) [Concomitant]

REACTIONS (2)
  - CARDIO-RESPIRATORY ARREST [None]
  - MYOCARDIAL INFARCTION [None]
